FAERS Safety Report 21589391 (Version 2)
Quarter: 2022Q4

REPORT INFORMATION
  Report Type: Report from Study
  Country: US (occurrence: US)
  Receive Date: 20221114
  Receipt Date: 20221122
  Transmission Date: 20230112
  Serious: Yes (Hospitalization)
  Sender: FDA-Public Use
  Company Number: US-BRISTOL-MYERS SQUIBB COMPANY-2022-136698

PATIENT
  Age: 26 Year
  Sex: Male
  Weight: 70.6 kg

DRUGS (2)
  1. NIVOLUMAB [Suspect]
     Active Substance: NIVOLUMAB
     Indication: Meningioma
     Route: 042
     Dates: start: 20220926, end: 20221024
  2. IPILIMUMAB [Suspect]
     Active Substance: IPILIMUMAB
     Indication: Meningioma
     Route: 042
     Dates: start: 20220926, end: 20221024

REACTIONS (2)
  - Aspartate aminotransferase increased [Recovering/Resolving]
  - Alanine aminotransferase increased [Recovering/Resolving]

NARRATIVE: CASE EVENT DATE: 20221109
